FAERS Safety Report 23822512 (Version 1)
Quarter: 2024Q2

REPORT INFORMATION
  Report Type: Report from Study
  Country: FR (occurrence: FR)
  Receive Date: 20240506
  Receipt Date: 20240506
  Transmission Date: 20240716
  Serious: Yes (Other)
  Sender: FDA-Public Use
  Company Number: FR-ALNYLAM PHARMACEUTICALS, INC.-ALN-2024-002516

PATIENT

DRUGS (1)
  1. OXLUMO [Suspect]
     Active Substance: LUMASIRAN
     Indication: Product used for unknown indication
     Dosage: UNK
     Route: 065

REACTIONS (6)
  - Pericarditis [Unknown]
  - Fatigue [Unknown]
  - Anxiety [Unknown]
  - Injection site pain [Recovered/Resolved]
  - Injection site haematoma [Recovered/Resolved]
  - Chest pain [Unknown]
